FAERS Safety Report 4449738-0 (Version None)
Quarter: 2004Q3

REPORT INFORMATION
  Report Type: 
  Country: None (occurrence: None)
  Receive Date: 20040913
  Receipt Date: 20040831
  Transmission Date: 20050211
  Serious: Yes (Death)
  Sender: FDA-Public Use
  Company Number: 163-20785-04070546

PATIENT
  Age: 73 Year
  Sex: Male

DRUGS (3)
  1. THALOMID [Suspect]
     Indication: MULTIPLE MYELOMA
     Dosage: 200 MG, DAILY, ORAL;  100 MG, DAILY, ORAL
     Route: 048
     Dates: end: 20040701
  2. THALOMID [Suspect]
     Indication: MULTIPLE MYELOMA
     Dosage: 200 MG, DAILY, ORAL;  100 MG, DAILY, ORAL
     Route: 048
     Dates: start: 20020409
  3. THALOMID [Suspect]

REACTIONS (4)
  - CARDIO-RESPIRATORY ARREST [None]
  - FAILURE TO THRIVE [None]
  - MALIGNANT NEOPLASM PROGRESSION [None]
  - MULTIPLE MYELOMA [None]
